FAERS Safety Report 21196503 (Version 1)
Quarter: 2022Q3

REPORT INFORMATION
  Report Type: Report from Study
  Country: CN (occurrence: CN)
  Receive Date: 20220810
  Receipt Date: 20220810
  Transmission Date: 20221027
  Serious: Yes (Death, Other)
  Sender: FDA-Public Use
  Company Number: CN-BAXTER-2022BAX016842

PATIENT
  Sex: Female
  Weight: 55 kg

DRUGS (24)
  1. AMINO ACIDS\DEXTROSE\ELECTROLYTES NOS\SOYBEAN OIL [Suspect]
     Active Substance: AMINO ACIDS\DEXTROSE\ELECTROLYTES NOS\SOYBEAN OIL
     Indication: Product used for unknown indication
     Dosage: 1500 ML AT THE INFUSION RATE OF 3ML/KG/H
     Route: 065
     Dates: start: 20220114, end: 20220114
  2. AMINO ACIDS\DEXTROSE\ELECTROLYTES NOS\SOYBEAN OIL [Suspect]
     Active Substance: AMINO ACIDS\DEXTROSE\ELECTROLYTES NOS\SOYBEAN OIL
     Dosage: 1500 ML AT THE INFUSION RATE OF 3ML/KG/H
     Route: 065
     Dates: start: 20220115, end: 20220116
  3. AMINO ACIDS\DEXTROSE\ELECTROLYTES NOS\SOYBEAN OIL [Suspect]
     Active Substance: AMINO ACIDS\DEXTROSE\ELECTROLYTES NOS\SOYBEAN OIL
     Dosage: 1500 ML AT THE INFUSION RATE OF 3ML/KG/H
     Route: 065
     Dates: start: 20220116, end: 20220117
  4. AMINO ACIDS\DEXTROSE\ELECTROLYTES NOS\SOYBEAN OIL [Suspect]
     Active Substance: AMINO ACIDS\DEXTROSE\ELECTROLYTES NOS\SOYBEAN OIL
     Dosage: 1500 ML AT THE INFUSION RATE OF 3ML/KG/H
     Route: 065
     Dates: start: 20220117, end: 20220118
  5. AMINO ACIDS\DEXTROSE\ELECTROLYTES NOS\SOYBEAN OIL [Suspect]
     Active Substance: AMINO ACIDS\DEXTROSE\ELECTROLYTES NOS\SOYBEAN OIL
     Dosage: 1500 ML AT THE INFUSION RATE OF 3ML/KG/H
     Route: 065
     Dates: start: 20220118, end: 20220119
  6. AMINO ACIDS\DEXTROSE\ELECTROLYTES NOS\SOYBEAN OIL [Suspect]
     Active Substance: AMINO ACIDS\DEXTROSE\ELECTROLYTES NOS\SOYBEAN OIL
     Dosage: 1500 ML AT THE INFUSION RATE OF 3ML/KG/H
     Route: 065
     Dates: start: 20220119, end: 20220120
  7. AMINO ACIDS\DEXTROSE\ELECTROLYTES NOS\SOYBEAN OIL [Suspect]
     Active Substance: AMINO ACIDS\DEXTROSE\ELECTROLYTES NOS\SOYBEAN OIL
     Dosage: 1500 ML AT THE INFUSION RATE OF 3ML/KG/H
     Route: 065
     Dates: start: 20220120, end: 20220121
  8. AMINO ACIDS\DEXTROSE\ELECTROLYTES NOS\SOYBEAN OIL [Suspect]
     Active Substance: AMINO ACIDS\DEXTROSE\ELECTROLYTES NOS\SOYBEAN OIL
     Dosage: 1500 ML AT THE INFUSION RATE OF 3ML/KG/H
     Route: 065
     Dates: start: 20220121, end: 20220122
  9. UNSPECIFIED INGREDIENT [Concomitant]
     Active Substance: UNSPECIFIED INGREDIENT
     Indication: Medication dilution
     Dosage: 1 G
     Route: 065
     Dates: start: 20220114, end: 20220114
  10. UNSPECIFIED INGREDIENT [Concomitant]
     Active Substance: UNSPECIFIED INGREDIENT
     Dosage: 1 G
     Route: 065
     Dates: start: 20220115, end: 20220116
  11. UNSPECIFIED INGREDIENT [Concomitant]
     Active Substance: UNSPECIFIED INGREDIENT
     Dosage: 1 G
     Route: 065
     Dates: start: 20220116, end: 20220117
  12. UNSPECIFIED INGREDIENT [Concomitant]
     Active Substance: UNSPECIFIED INGREDIENT
     Dosage: 1 G
     Route: 065
     Dates: start: 20220117, end: 20220118
  13. UNSPECIFIED INGREDIENT [Concomitant]
     Active Substance: UNSPECIFIED INGREDIENT
     Dosage: 1 G
     Route: 065
     Dates: start: 20220118, end: 20220119
  14. UNSPECIFIED INGREDIENT [Concomitant]
     Active Substance: UNSPECIFIED INGREDIENT
     Dosage: 1 G
     Route: 065
     Dates: start: 20220119, end: 20220120
  15. UNSPECIFIED INGREDIENT [Concomitant]
     Active Substance: UNSPECIFIED INGREDIENT
     Dosage: 1 G
     Route: 065
     Dates: start: 20220120, end: 20220121
  16. UNSPECIFIED INGREDIENT [Concomitant]
     Active Substance: UNSPECIFIED INGREDIENT
     Dosage: 1 G
     Route: 065
     Dates: start: 20220121, end: 20220122
  17. INSULIN NOS [Concomitant]
     Active Substance: INSULIN NOS
     Indication: Medication dilution
     Dosage: INJECTION 24U
     Route: 065
     Dates: start: 20220114, end: 20220114
  18. INSULIN NOS [Concomitant]
     Active Substance: INSULIN NOS
     Dosage: INJECTION 30U
     Route: 065
     Dates: start: 20220115, end: 20220116
  19. INSULIN NOS [Concomitant]
     Active Substance: INSULIN NOS
     Dosage: INJECTION 30U
     Route: 065
     Dates: start: 20220116, end: 20220117
  20. INSULIN NOS [Concomitant]
     Active Substance: INSULIN NOS
     Dosage: INJECTION 30U
     Route: 065
     Dates: start: 20220117, end: 20220118
  21. INSULIN NOS [Concomitant]
     Active Substance: INSULIN NOS
     Dosage: INJECTION 30U
     Route: 065
     Dates: start: 20220118, end: 20220119
  22. INSULIN NOS [Concomitant]
     Active Substance: INSULIN NOS
     Dosage: INJECTION 30U
     Route: 065
     Dates: start: 20220119, end: 20220120
  23. INSULIN NOS [Concomitant]
     Active Substance: INSULIN NOS
     Dosage: INJECTION 30U
     Route: 065
     Dates: start: 20220120, end: 20220121
  24. INSULIN NOS [Concomitant]
     Active Substance: INSULIN NOS
     Dosage: INJECTION 30U
     Route: 065
     Dates: start: 20220121, end: 20220122

REACTIONS (1)
  - Septic shock [Fatal]
